FAERS Safety Report 25674172 (Version 1)
Quarter: 2025Q3

REPORT INFORMATION
  Report Type: Other
  Country: TN (occurrence: TN)
  Receive Date: 20250813
  Receipt Date: 20250813
  Transmission Date: 20251021
  Serious: Yes (Death, Hospitalization)
  Sender: ESJAY PHARMA
  Company Number: TN-ESJAY PHARMA-000910

PATIENT
  Sex: Male

DRUGS (4)
  1. FUROSEMIDE [Suspect]
     Active Substance: FUROSEMIDE
     Indication: Neonatal respiratory distress
     Route: 042
  2. DIGOXIN [Concomitant]
     Active Substance: DIGOXIN
     Indication: Cardiac failure
  3. AMIODARONE [Concomitant]
     Active Substance: AMIODARONE
     Indication: Product used for unknown indication
  4. NITRIC OXIDE [Concomitant]
     Active Substance: NITRIC OXIDE
     Indication: Product used for unknown indication

REACTIONS (1)
  - Drug ineffective [Fatal]
